FAERS Safety Report 12314595 (Version 4)
Quarter: 2017Q4

REPORT INFORMATION
  Report Type: Spontaneous
  Country: JP (occurrence: JP)
  Receive Date: 20160428
  Receipt Date: 20171220
  Transmission Date: 20180320
  Serious: Yes (Hospitalization, Other)
  Sender: FDA-Public Use
  Company Number: JP-ALLERGAN-1654993US

PATIENT
  Age: 61 Year
  Sex: Male

DRUGS (9)
  1. BOTOX [Suspect]
     Active Substance: ONABOTULINUMTOXINA
     Indication: MUSCLE SPASMS
     Dosage: 200 UNITS, SINGLE
     Route: 030
     Dates: start: 20150521, end: 20150521
  2. ULCERLMIN [Concomitant]
     Active Substance: SUCRALFATE
  3. BOTOX [Suspect]
     Active Substance: ONABOTULINUMTOXINA
     Dosage: 240 UNITS, SINGLE
     Route: 030
     Dates: start: 20150903, end: 20150903
  4. NEODOPASTON [Concomitant]
     Active Substance: CARBIDOPA\LEVODOPA
  5. MAGNESIUM OXIDE. [Concomitant]
     Active Substance: MAGNESIUM OXIDE
     Dosage: UNK
  6. BOTOX [Suspect]
     Active Substance: ONABOTULINUMTOXINA
     Dosage: 360 UNITS, SINGLE
     Route: 030
     Dates: start: 20160317, end: 20160317
  7. URSO [Concomitant]
     Active Substance: URSODIOL
     Dosage: UNK
  8. MUCODYNE-DS [Concomitant]
     Active Substance: CARBOCYSTEINE
     Dosage: UNK
  9. BOTOX [Suspect]
     Active Substance: ONABOTULINUMTOXINA
     Dosage: 360 UNITS, SINGLE
     Route: 030
     Dates: start: 20151217, end: 20151217

REACTIONS (7)
  - Tracheal haemorrhage [Recovered/Resolved]
  - Drug hypersensitivity [Recovered/Resolved]
  - Hypoxia [Recovering/Resolving]
  - Haemoptysis [Recovering/Resolving]
  - Pulmonary alveolar haemorrhage [Recovered/Resolved]
  - Pleural effusion [Recovering/Resolving]
  - Pyrexia [Recovering/Resolving]

NARRATIVE: CASE EVENT DATE: 2016
